FAERS Safety Report 9716122 (Version 1)
Quarter: 2013Q4

REPORT INFORMATION
  Report Type: Spontaneous
  Country: FR (occurrence: FR)
  Receive Date: 20131127
  Receipt Date: 20131127
  Transmission Date: 20140711
  Serious: Yes (Other)
  Sender: FDA-Public Use
  Company Number: FR-BAYER-2013-145136

PATIENT
  Age: 73 Year
  Sex: Male

DRUGS (1)
  1. SORAFENIB (RAF KINASE INHIBITOR) [Suspect]
     Indication: METASTATIC RENAL CELL CARCINOMA
     Dosage: DAILY DOSE 800 MG
     Route: 048
     Dates: start: 200901, end: 200912

REACTIONS (7)
  - Ichthyosis acquired [None]
  - Diarrhoea [None]
  - Metastasis [None]
  - Abdominal pain [None]
  - Tumour haemorrhage [None]
  - Melaena [None]
  - Anaemia [None]
